FAERS Safety Report 8038415-5 (Version None)
Quarter: 2012Q1

REPORT INFORMATION
  Report Type: 
  Country: None (occurrence: None)
  Receive Date: 20120111
  Receipt Date: 20111213
  Transmission Date: 20120608
  Serious: No
  Sender: FDA-Public Use
  Company Number: US-AMGEN-USASP2011066459

PATIENT
  Age: 24 Year
  Sex: Female

DRUGS (1)
  1. ENBREL [Suspect]
     Indication: PSORIASIS
     Dosage: 50 MG, QWK
     Dates: start: 20040201

REACTIONS (6)
  - INFLUENZA [None]
  - OROPHARYNGEAL PAIN [None]
  - DIARRHOEA [None]
  - COUGH [None]
  - VOMITING [None]
  - RHINORRHOEA [None]
